FAERS Safety Report 25506599 (Version 1)
Quarter: 2025Q3

REPORT INFORMATION
  Report Type: Spontaneous
  Country: US (occurrence: US)
  Receive Date: 20250702
  Receipt Date: 20250702
  Transmission Date: 20251021
  Serious: No
  Sender: DR REDDYS
  Company Number: US-DRL-USA-USA/2025/06/008750

PATIENT
  Sex: Female

DRUGS (1)
  1. OMEPRAZOLE [Suspect]
     Active Substance: OMEPRAZOLE
     Indication: Product used for unknown indication
     Dosage: SWALLOW 1 CAPSULE WITH A GLASS OF WATER BEFORE EATING IN THE MORNING
     Route: 048

REACTIONS (1)
  - Inappropriate schedule of product administration [Unknown]
